FAERS Safety Report 6549104-8 (Version None)
Quarter: 2010Q1

REPORT INFORMATION
  Report Type: 
  Country: None (occurrence: None)
  Receive Date: 20100119
  Receipt Date: 20100112
  Transmission Date: 20100710
  Serious: Yes (Death, Hospitalization)
  Sender: FDA-Public Use
  Company Number: 2010SP002897

PATIENT
  Age: 59 Year
  Sex: Female
  Weight: 80 kg

DRUGS (6)
  1. DEXAMETHASONE [Suspect]
     Indication: MULTIPLE MYELOMA
     Dosage: 20 MG;
     Dates: start: 20071111, end: 20071130
  2. VELCADE [Suspect]
     Indication: MULTIPLE MYELOMA
     Dosage: 1.3 MG/M2; ; IV
     Route: 042
     Dates: start: 20071111, end: 20071130
  3. CODEINE [Concomitant]
  4. FLUDROCORTISONE [Concomitant]
  5. LOPERAMIDE [Concomitant]
  6. OCTREOTIDE ACETATE [Concomitant]

REACTIONS (3)
  - CIRCULATORY COLLAPSE [None]
  - DIARRHOEA [None]
  - ORTHOSTATIC HYPOTENSION [None]
